FAERS Safety Report 23333408 (Version 2)
Quarter: 2024Q2

REPORT INFORMATION
  Report Type: Spontaneous
  Country: JP (occurrence: JP)
  Receive Date: 20231222
  Receipt Date: 20240426
  Transmission Date: 20240716
  Serious: Yes (Death)
  Sender: FDA-Public Use
  Company Number: JP-PFIZER INC-202300450917

PATIENT
  Sex: Male

DRUGS (1)
  1. TAFAMIDIS [Suspect]
     Active Substance: TAFAMIDIS
     Indication: Cardiac amyloidosis
     Dosage: 61 MG, DAILY
     Route: 048
     Dates: start: 202304, end: 202401

REACTIONS (2)
  - Cardiac amyloidosis [Fatal]
  - Disease progression [Fatal]

NARRATIVE: CASE EVENT DATE: 20240101
